FAERS Safety Report 8247696-4 (Version None)
Quarter: 2012Q1

REPORT INFORMATION
  Report Type: 
  Country: None (occurrence: None)
  Receive Date: 20120330
  Receipt Date: 20120327
  Transmission Date: 20120608
  Serious: Yes (Hospitalization)
  Sender: FDA-Public Use
  Company Number: US-GLAXOSMITHKLINE-A0822172A

PATIENT
  Age: 63 Year
  Sex: Male
  Weight: 102.7 kg

DRUGS (7)
  1. METFORMIN HCL [Concomitant]
  2. ZOCOR [Concomitant]
  3. PROTONIX [Concomitant]
  4. ALBUTEROL [Concomitant]
  5. VIAGRA [Concomitant]
  6. ALTACE [Concomitant]
  7. AVANDIA [Suspect]
     Indication: TYPE 2 DIABETES MELLITUS
     Dosage: 4MG TWICE PER DAY
     Route: 048
     Dates: start: 20020502, end: 20051201

REACTIONS (2)
  - CORONARY ARTERY DISEASE [None]
  - CEREBROVASCULAR ACCIDENT [None]
